FAERS Safety Report 8249991-1 (Version None)
Quarter: 2012Q2

REPORT INFORMATION
  Report Type: 
  Country: None (occurrence: None)
  Receive Date: 20120402
  Receipt Date: 20120319
  Transmission Date: 20120825
  Serious: Yes (Hospitalization)
  Sender: FDA-Public Use
  Company Number: TR-MYLANLABS-2012S1006217

PATIENT
  Age: 39 Year
  Sex: Male

DRUGS (4)
  1. METFORMIN HCL [Suspect]
     Indication: INTENTIONAL OVERDOSE
     Dosage: TOTAL 59.5G OR 583 MG/KG
     Route: 048
  2. METFORMIN HCL [Suspect]
     Indication: TYPE 2 DIABETES MELLITUS
     Dosage: TOTAL 59.5G OR 583 MG/KG
     Route: 048
  3. METFORMIN HCL [Suspect]
     Route: 048
  4. METFORMIN HCL [Suspect]
     Route: 048

REACTIONS (4)
  - SUICIDE ATTEMPT [None]
  - LACTIC ACIDOSIS [None]
  - INTENTIONAL OVERDOSE [None]
  - RENAL FAILURE ACUTE [None]
